FAERS Safety Report 7379648-0 (Version None)
Quarter: 2011Q1

REPORT INFORMATION
  Report Type: 
  Country: None (occurrence: None)
  Receive Date: 20110329
  Receipt Date: 20110325
  Transmission Date: 20110831
  Serious: No
  Sender: FDA-Public Use
  Company Number: US-PFIZER INC-2011067383

PATIENT
  Sex: Female
  Weight: 45 kg

DRUGS (1)
  1. ADVIL LIQUI-GELS [Suspect]
     Indication: MUSCULOSKELETAL PAIN
     Dosage: 200 MG, UNK
     Route: 048
     Dates: start: 20110325

REACTIONS (1)
  - THROAT IRRITATION [None]
